FAERS Safety Report 13532008 (Version 1)
Quarter: 2017Q2

REPORT INFORMATION
  Report Type: Spontaneous
  Country: US (occurrence: PT)
  Receive Date: 20170510
  Receipt Date: 20170510
  Transmission Date: 20170830
  Serious: Yes (Other)
  Sender: FDA-Public Use
  Company Number: US-SUNOVION-2017SUN001987

PATIENT

DRUGS (1)
  1. INDACATEROL [Suspect]
     Active Substance: INDACATEROL
     Indication: CHRONIC OBSTRUCTIVE PULMONARY DISEASE
     Dosage: UNK
     Route: 065

REACTIONS (5)
  - Acute coronary syndrome [Unknown]
  - Fatigue [Recovering/Resolving]
  - Cerebrovascular accident [Recovered/Resolved]
  - Obstructive airways disorder [Unknown]
  - Dyspnoea [Recovering/Resolving]
